FAERS Safety Report 9579388 (Version 1)
Quarter: 2013Q4

REPORT INFORMATION
  Report Type: Spontaneous
  Country: US (occurrence: US)
  Receive Date: 20131001
  Receipt Date: 20131001
  Transmission Date: 20140711
  Serious: No
  Sender: FDA-Public Use
  Company Number: US-AMGEN-USASP2013017737

PATIENT
  Age: 60 Year
  Sex: Female

DRUGS (14)
  1. ENBREL [Suspect]
     Indication: PRODUCT USED FOR UNKNOWN INDICATION
     Dosage: 50 MG, QWK
     Route: 058
  2. LEFLUNOMIDE [Concomitant]
     Dosage: 10 MG, UNK
  3. HYDROXYCHLOROQUINE [Concomitant]
     Dosage: 200 MG, UNK
  4. PREDNISONE [Concomitant]
     Dosage: 1 MG, UNK
  5. TRAMADOL HCL [Concomitant]
     Dosage: 50 MG, UNK
  6. NORVASC [Concomitant]
     Dosage: 2.5 MG, UNK
  7. FLEXERIL                           /00428402/ [Concomitant]
     Dosage: 5 MG, UNK
  8. ZOCOR [Concomitant]
     Dosage: 5 MG, UNK
  9. HUMALOG [Concomitant]
     Dosage: 100 PER ML
  10. LANTUS [Concomitant]
     Dosage: 100 PER ML
  11. LISINOPRIL [Concomitant]
     Dosage: 5 MG, UNK
  12. FOSAMAX [Concomitant]
     Dosage: 5 MG, UNK
  13. CALCIUM [Concomitant]
     Dosage: 500 UNK, UNK
  14. HYDROCHLOROTHIAZIDE W/TRIAMTERENE [Concomitant]
     Dosage: 25-37.5

REACTIONS (2)
  - Fall [Unknown]
  - Nausea [Unknown]
